FAERS Safety Report 24848177 (Version 1)
Quarter: 2025Q1

REPORT INFORMATION
  Report Type: Spontaneous
  Country: US (occurrence: US)
  Receive Date: 20250116
  Receipt Date: 20250116
  Transmission Date: 20250409
  Serious: Yes (Other)
  Sender: DR REDDYS
  Company Number: None

PATIENT
  Age: 68 Year
  Sex: Female

DRUGS (2)
  1. DOXORUBICIN [Suspect]
     Active Substance: DOXORUBICIN
     Indication: Leiomyosarcoma metastatic
  2. OLARATUMAB [Suspect]
     Active Substance: OLARATUMAB
     Indication: Leiomyosarcoma metastatic

REACTIONS (1)
  - Neutropenia [Unknown]
